FAERS Safety Report 8948219 (Version 2)
Quarter: 2012Q4

REPORT INFORMATION
  Report Type: 
  Country: GB (occurrence: None)
  Receive Date: 20121127
  Receipt Date: 20121129
  Transmission Date: 20130627
  Serious: Yes (Other)
  Sender: FDA-Public Use
  Company Number: GER/UKI/12/0026705

PATIENT
  Sex: Male

DRUGS (1)
  1. FINASTERIDE (FINASTERIDE) [Suspect]
     Indication: BENIGN PROSTATIC HYPERPLASIA

REACTIONS (3)
  - Pollakiuria [None]
  - Dysuria [None]
  - Blood urine present [None]
